FAERS Safety Report 19424846 (Version 1)
Quarter: 2021Q2

REPORT INFORMATION
  Report Type: Spontaneous
  Country: US (occurrence: US)
  Receive Date: 20210617
  Receipt Date: 20210617
  Transmission Date: 20210717
  Serious: Yes (Hospitalization, Other)
  Sender: FDA-Public Use
  Company Number: US-SUN PHARMACEUTICAL INDUSTRIES LTD-2021R1-300052

PATIENT
  Age: 59 Year
  Sex: Female

DRUGS (4)
  1. IRINOTECAN [Suspect]
     Active Substance: IRINOTECAN
     Indication: SMALL INTESTINE CARCINOMA
     Dosage: FOUR CYCLES
     Route: 065
  2. FLUOROURACIL. [Suspect]
     Active Substance: FLUOROURACIL
     Indication: SMALL INTESTINE CARCINOMA
     Dosage: FOUR CYCLES
     Route: 065
  3. OXALIPLATIN. [Suspect]
     Active Substance: OXALIPLATIN
     Indication: SMALL INTESTINE CARCINOMA
     Dosage: FOUR CYCLES
     Route: 065
  4. LEUCOVORIN. [Suspect]
     Active Substance: LEUCOVORIN
     Indication: SMALL INTESTINE CARCINOMA
     Dosage: FOUR CYCLES
     Route: 065

REACTIONS (3)
  - Disease progression [Unknown]
  - Pyrexia [Unknown]
  - Neutropenia [Unknown]
